FAERS Safety Report 13455678 (Version 7)
Quarter: 2018Q4

REPORT INFORMATION
  Report Type: Report from Study
  Country: US (occurrence: US)
  Receive Date: 20170418
  Receipt Date: 20181231
  Transmission Date: 20190204
  Serious: Yes (Hospitalization, Other)
  Sender: FDA-Public Use
  Company Number: US-ACTELION-A-US2013-88612

PATIENT
  Age: 65 Year
  Sex: Female
  Weight: 77.98 kg

DRUGS (15)
  1. IRON [Concomitant]
     Active Substance: IRON
     Dosage: 325 MG, UNK
  2. VITAMIN D [Concomitant]
     Active Substance: CHOLECALCIFEROL
  3. REVATIO [Concomitant]
     Active Substance: SILDENAFIL CITRATE
     Dosage: 20 MG, TID
     Dates: start: 201106
  4. LISINOPRIL. [Concomitant]
     Active Substance: LISINOPRIL
     Dosage: 5 MG, UNK
     Dates: start: 2009
  5. PREDNISONE. [Concomitant]
     Active Substance: PREDNISONE
     Dosage: 5 MG, UNK
     Dates: start: 201106
  6. TRACLEER [Suspect]
     Active Substance: BOSENTAN
     Indication: PULMONARY ARTERIAL HYPERTENSION
     Dosage: 125 MG, BID
     Route: 048
     Dates: start: 20111122
  7. NEXIUM [Concomitant]
     Active Substance: ESOMEPRAZOLE MAGNESIUM
     Dosage: 40 MG, QD
     Dates: start: 2010
  8. MAGNESIUM OXIDE. [Concomitant]
     Active Substance: MAGNESIUM OXIDE
     Dosage: 40 USP UNIT, UNK
     Route: 048
  9. TRACLEER [Suspect]
     Active Substance: BOSENTAN
     Dosage: 125 MG, BID
     Route: 048
  10. MG [Concomitant]
     Active Substance: MAGNESIUM
     Dosage: 40 MG, UNK
  11. NORVASC [Concomitant]
     Active Substance: AMLODIPINE BESYLATE
     Dosage: 10 MG, UNK
     Dates: start: 2009
  12. LEVOTHYROXINE. [Concomitant]
     Active Substance: LEVOTHYROXINE
     Dosage: 0.1 MG, UNK
     Dates: start: 1984
  13. AMLODIPINE [Concomitant]
     Active Substance: AMLODIPINE BESYLATE
  14. SPIRONOLACTONE. [Concomitant]
     Active Substance: SPIRONOLACTONE
     Dosage: 25 MG, UNK
     Dates: start: 2009
  15. KLOR-CON [Concomitant]
     Active Substance: POTASSIUM CHLORIDE
     Dosage: 10 MEQ, BID

REACTIONS (18)
  - Vomiting [Unknown]
  - Nasopharyngitis [Recovering/Resolving]
  - Ascites [Unknown]
  - Aspartate aminotransferase increased [Unknown]
  - Scleroderma [Unknown]
  - Influenza [Unknown]
  - Splenomegaly [Unknown]
  - Alanine aminotransferase increased [Unknown]
  - Ulcer haemorrhage [Unknown]
  - Portal hypertension [Unknown]
  - Hepatic cirrhosis [Unknown]
  - Hepatomegaly [Unknown]
  - Product dose omission [Unknown]
  - Liver function test increased [Unknown]
  - Anaemia [Unknown]
  - Abdominal distension [Unknown]
  - Osteoporosis [Not Recovered/Not Resolved]
  - Blood alkaline phosphatase increased [Unknown]

NARRATIVE: CASE EVENT DATE: 201302
